FAERS Safety Report 20458340 (Version 1)
Quarter: 2022Q1

REPORT INFORMATION
  Report Type: Other
  Country: GB (occurrence: GB)
  Receive Date: 20220211
  Receipt Date: 20220211
  Transmission Date: 20220423
  Serious: Yes (Hospitalization)
  Sender: FDA-Public Use
  Company Number: None

PATIENT
  Age: 81 Year
  Sex: Female

DRUGS (8)
  1. PREDNISOLONE [Suspect]
     Active Substance: PREDNISOLONE
     Indication: Ill-defined disorder
     Dosage: UNK UNK, CYCLICAL (R-CVP CHEMOTHERAPY )
     Route: 048
     Dates: start: 20220125
  2. PREDNISOLONE [Suspect]
     Active Substance: PREDNISOLONE
     Indication: Splenic marginal zone lymphoma
  3. RITUXIMAB [Suspect]
     Active Substance: RITUXIMAB
     Indication: Ill-defined disorder
     Dosage: UNK UNK, CYCLICAL (R-CVP CHEMOTHERAPY )
     Route: 042
     Dates: start: 20220125, end: 20220125
  4. RITUXIMAB [Suspect]
     Active Substance: RITUXIMAB
     Indication: Splenic marginal zone lymphoma
  5. VINCRISTINE [Suspect]
     Active Substance: VINCRISTINE
     Indication: Ill-defined disorder
     Dosage: UNK UNK, CYCLICAL (R-CVP CHEMOTHERAPY)
     Route: 042
     Dates: start: 20220125, end: 20220125
  6. VINCRISTINE [Suspect]
     Active Substance: VINCRISTINE
     Indication: Splenic marginal zone lymphoma
  7. CYCLOPHOSPHAMIDE [Suspect]
     Active Substance: CYCLOPHOSPHAMIDE
     Indication: Ill-defined disorder
     Dosage: UNK UNK, CYCLICAL (R-CVP CHEMOTHERAPY)
     Route: 042
     Dates: start: 20220125, end: 20220125
  8. CYCLOPHOSPHAMIDE [Suspect]
     Active Substance: CYCLOPHOSPHAMIDE
     Indication: Splenic marginal zone lymphoma

REACTIONS (1)
  - Atrial flutter [Recovered/Resolved]

NARRATIVE: CASE EVENT DATE: 20220203
